FAERS Safety Report 9922571 (Version 5)
Quarter: 2015Q3

REPORT INFORMATION
  Report Type: Report from Study
  Country: CN (occurrence: CN)
  Receive Date: 20140225
  Receipt Date: 20150818
  Transmission Date: 20151125
  Serious: Yes (Hospitalization)
  Sender: FDA-Public Use
  Company Number: PHHY2014CN022902

PATIENT
  Age: 48 Year
  Sex: Male
  Weight: 60 kg

DRUGS (4)
  1. SANDIMMUN NEORAL [Concomitant]
     Active Substance: CYCLOSPORINE
     Indication: KIDNEY TRANSPLANT REJECTION
     Dosage: 300 MG, UNK
     Route: 065
     Dates: start: 20131113, end: 20140213
  2. MYCOPHENOLIC ACID. [Suspect]
     Active Substance: MYCOPHENOLIC ACID
     Indication: KIDNEY TRANSPLANT REJECTION
     Dosage: 1080 MG, UNK
     Route: 048
     Dates: start: 20131113, end: 20140208
  3. METHYLPREDNISOLONE. [Concomitant]
     Active Substance: METHYLPREDNISOLONE
     Indication: KIDNEY TRANSPLANT REJECTION
     Dosage: 12 MG, UNK
     Route: 065
     Dates: start: 20131113
  4. MYCOPHENOLIC ACID. [Suspect]
     Active Substance: MYCOPHENOLIC ACID
     Indication: RENAL TRANSPLANT

REACTIONS (3)
  - Lung infection [Recovered/Resolved]
  - Asthma [Recovered/Resolved]
  - Pyrexia [Recovered/Resolved]

NARRATIVE: CASE EVENT DATE: 20140207
